FAERS Safety Report 19780886 (Version 1)
Quarter: 2021Q3

REPORT INFORMATION
  Report Type: Spontaneous
  Country: US (occurrence: US)
  Receive Date: 20210903
  Receipt Date: 20210903
  Transmission Date: 20211014
  Serious: Yes (Other)
  Sender: FDA-Public Use
  Company Number: US-PURDUE-USA-2020-0164938

PATIENT
  Sex: Male

DRUGS (1)
  1. OXYCODONE/ ACETAMINOPHEN TABLETS [Suspect]
     Active Substance: ACETAMINOPHEN\OXYCODONE HYDROCHLORIDE
     Indication: BRAIN OPERATION
     Dosage: UNKNOWN
     Route: 048

REACTIONS (3)
  - Depressed mood [Unknown]
  - Hypoaesthesia [Unknown]
  - Drug dependence [Recovered/Resolved]
